FAERS Safety Report 12487059 (Version 1)
Quarter: 2016Q2

REPORT INFORMATION
  Report Type: Spontaneous
  Country: US (occurrence: None)
  Receive Date: 20160621
  Receipt Date: 20160621
  Transmission Date: 20160815
  Serious: Yes (Other)
  Sender: FDA-Public Use
  Company Number: None

PATIENT
  Age: 64 Year
  Sex: Male
  Weight: 76.2 kg

DRUGS (4)
  1. CLOBETASOL [Concomitant]
     Active Substance: CLOBETASOL
  2. CALCIUM [Concomitant]
     Active Substance: CALCIUM
  3. CIPROFLOXACIN. [Suspect]
     Active Substance: CIPROFLOXACIN
     Indication: GINGIVAL GRAFT
     Dates: start: 20160509, end: 20160516
  4. DILANTIN [Concomitant]
     Active Substance: PHENYTOIN

REACTIONS (6)
  - Pain in extremity [None]
  - Musculoskeletal pain [None]
  - Musculoskeletal disorder [None]
  - Tendon pain [None]
  - Arthralgia [None]
  - Joint swelling [None]

NARRATIVE: CASE EVENT DATE: 20160518
